FAERS Safety Report 19097287 (Version 2)
Quarter: 2021Q2

REPORT INFORMATION
  Report Type: Report from Study
  Country: US (occurrence: US)
  Receive Date: 20210406
  Receipt Date: 20210416
  Transmission Date: 20210717
  Serious: No
  Sender: FDA-Public Use
  Company Number: US-HBP-2021US021853

PATIENT
  Sex: Male

DRUGS (3)
  1. VALCHLOR [Suspect]
     Active Substance: MECHLORETHAMINE
     Indication: CUTANEOUS T-CELL LYMPHOMA
     Dosage: UNK, QD
     Route: 061
     Dates: start: 2021
  2. VALCHLOR [Suspect]
     Active Substance: MECHLORETHAMINE
     Dosage: UNK, EVERY DAY
     Route: 061
     Dates: start: 2021
  3. VALCHLOR [Suspect]
     Active Substance: MECHLORETHAMINE
     Dosage: UNK, EVERY OTHER DAY
     Route: 061
     Dates: start: 2021

REACTIONS (13)
  - Eye inflammation [Not Recovered/Not Resolved]
  - Peripheral swelling [Unknown]
  - Application site dryness [Not Recovered/Not Resolved]
  - Condition aggravated [Not Recovered/Not Resolved]
  - Lymphadenitis [Unknown]
  - Application site fissure [Not Recovered/Not Resolved]
  - Intentional product misuse [Recovered/Resolved]
  - Product use issue [Not Recovered/Not Resolved]
  - Intentional dose omission [Recovered/Resolved]
  - Ocular hyperaemia [Not Recovered/Not Resolved]
  - Swelling of eyelid [Not Recovered/Not Resolved]
  - Skin hypertrophy [Unknown]
  - Inflammation [Unknown]

NARRATIVE: CASE EVENT DATE: 2021
